FAERS Safety Report 9183246 (Version 1)
Quarter: 2013Q1

REPORT INFORMATION
  Report Type: Spontaneous
  Country: US (occurrence: US)
  Receive Date: 20130322
  Receipt Date: 20130322
  Transmission Date: 20140127
  Serious: No
  Sender: FDA-Public Use
  Company Number: US-BRISTOL-MYERS SQUIBB COMPANY-16937732

PATIENT
  Age: 71 Year
  Sex: Male

DRUGS (3)
  1. ERBITUX [Suspect]
  2. LORAZEPAM [Concomitant]
  3. DOCUSATE [Concomitant]
     Dosage: DOC Q LACE

REACTIONS (2)
  - Rash [Unknown]
  - Fatigue [Unknown]
